FAERS Safety Report 18699148 (Version 2)
Quarter: 2021Q1

REPORT INFORMATION
  Report Type: Spontaneous
  Country: JP (occurrence: JP)
  Receive Date: 20210104
  Receipt Date: 20210205
  Transmission Date: 20210419
  Serious: Yes (Life-Threatening, Hospitalization, Other)
  Sender: FDA-Public Use
  Company Number: JP-SEATTLE GENETICS-2020SGN05430

PATIENT
  Age: 43 Year
  Sex: Male
  Weight: 100.6 kg

DRUGS (18)
  1. FEBURIC [Concomitant]
     Active Substance: FEBUXOSTAT
     Indication: TUMOUR LYSIS SYNDROME
     Dosage: 60 MILLIGRAM, QD
     Route: 048
     Dates: start: 20201030, end: 20201103
  2. G LASTA [Concomitant]
     Active Substance: PEGFILGRASTIM
     Dosage: 3.6 MILLIGRAM, QD
     Route: 065
     Dates: start: 20201116
  3. DOMPERIDONE [Concomitant]
     Active Substance: DOMPERIDONE
     Dosage: 10 MILLIGRAM
     Route: 065
     Dates: start: 20201110, end: 20201128
  4. MAGNESIUM OXIDE. [Concomitant]
     Active Substance: MAGNESIUM OXIDE
     Indication: CONSTIPATION
     Dosage: 330 MILLIGRAM, TID
     Route: 048
     Dates: start: 20201101, end: 20201128
  5. FILGRASTIM [Concomitant]
     Active Substance: FILGRASTIM
     Dosage: 75 MILLIGRAM, QD
     Route: 041
     Dates: start: 20201102, end: 20201109
  6. PREDONINE [Concomitant]
     Active Substance: PREDNISOLONE
     Dosage: 20 MILLIGRAM
     Route: 048
     Dates: start: 20201113
  7. SUCRALFATE. [Concomitant]
     Active Substance: SUCRALFATE
     Dosage: 10 MILLIGRAM, TID
     Route: 065
     Dates: start: 20201106, end: 20201128
  8. ADCETRIS [Suspect]
     Active Substance: BRENTUXIMAB VEDOTIN
     Indication: HODGKIN^S DISEASE
     Dosage: 106.8 MILLIGRAM
     Route: 041
     Dates: start: 20201030, end: 20201113
  9. DOXORUBICIN HYDROCHLORIDE. [Suspect]
     Active Substance: DOXORUBICIN HYDROCHLORIDE
     Indication: HODGKIN^S DISEASE
     Dosage: 53.575 MILLIGRAM
     Route: 041
     Dates: start: 20201030, end: 20201113
  10. EXAL [VINBLASTINE SULFATE] [Suspect]
     Active Substance: VINBLASTINE SULFATE
     Indication: HODGKIN^S DISEASE
     Dosage: 10 MILLIGRAM
     Route: 041
     Dates: start: 20201030, end: 20201113
  11. ALOXI [Concomitant]
     Active Substance: PALONOSETRON HYDROCHLORIDE
     Indication: PROPHYLAXIS OF NAUSEA AND VOMITING
     Dosage: 0.75 MILLIGRAM, QD
     Route: 041
     Dates: start: 20201113, end: 20201113
  12. CALONAL [Concomitant]
     Active Substance: ACETAMINOPHEN
     Indication: TUMOUR ASSOCIATED FEVER
     Dosage: 500 MILLIGRAM, QID
     Route: 048
     Dates: start: 20201030, end: 20201116
  13. SENNOSIDE A+B [Concomitant]
     Active Substance: SENNOSIDES A AND B
     Dosage: 12 MILLIGRAM, BID
     Route: 065
     Dates: start: 20201102, end: 20201128
  14. DACARBAZINE. [Suspect]
     Active Substance: DACARBAZINE
     Indication: HODGKIN^S DISEASE
     Dosage: 535.75 MILLIGRAM
     Route: 041
     Dates: start: 20201030, end: 20201113
  15. ACICLOVIR [Concomitant]
     Active Substance: ACYCLOVIR
     Dosage: 200 MILLIGRAM, QD
     Route: 065
     Dates: start: 20201108, end: 20201128
  16. PREDONINE [Concomitant]
     Active Substance: PREDNISOLONE
     Indication: TUMOUR ASSOCIATED FEVER
     Dosage: 30 MILLIGRAM, QD
     Route: 048
     Dates: start: 20201029, end: 20201101
  17. DEXART [Concomitant]
     Active Substance: DEXAMETHASONE SODIUM PHOSPHATE
     Indication: PROPHYLAXIS OF NAUSEA AND VOMITING
     Dosage: 6.6 MILLIGRAM, QD
     Route: 041
     Dates: start: 20201113, end: 20201113
  18. RABEPRAZOLE SODIUM. [Concomitant]
     Active Substance: RABEPRAZOLE SODIUM
     Indication: PROPHYLAXIS AGAINST GASTROINTESTINAL ULCER
     Dosage: 10 MILLIGRAM, QD
     Route: 048
     Dates: start: 20201022, end: 20201128

REACTIONS (8)
  - Vomiting [Unknown]
  - Oral candidiasis [Unknown]
  - Nausea [Unknown]
  - Pancreatitis acute [Recovering/Resolving]
  - Candida infection [Recovering/Resolving]
  - Stomatitis [Unknown]
  - Diabetic ketoacidosis [Recovered/Resolved with Sequelae]
  - Hiccups [Unknown]

NARRATIVE: CASE EVENT DATE: 20201121
